FAERS Safety Report 5690110-3 (Version None)
Quarter: 2008Q1

REPORT INFORMATION
  Report Type: 
  Country: None (occurrence: None)
  Receive Date: 20080331
  Receipt Date: 20080331
  Transmission Date: 20080703
  Serious: Yes (Other)
  Sender: FDA-Public Use
  Company Number: None

PATIENT
  Sex: Female
  Weight: 56.6996 kg

DRUGS (2)
  1. SINGULAIR [Suspect]
     Indication: ASTHMA
     Dosage: 10 MG OCE DAILY PO
     Route: 048
     Dates: start: 19990203, end: 20071014
  2. SINGULAIR [Suspect]
     Indication: HYPERSENSITIVITY
     Dosage: 10 MG OCE DAILY PO
     Route: 048
     Dates: start: 19990203, end: 20071014

REACTIONS (5)
  - ABNORMAL BEHAVIOUR [None]
  - CRYING [None]
  - DISTURBANCE IN SOCIAL BEHAVIOUR [None]
  - FEELINGS OF WORTHLESSNESS [None]
  - PERSONALITY CHANGE [None]
